FAERS Safety Report 10311983 (Version 1)
Quarter: 2014Q3

REPORT INFORMATION
  Report Type: Report from Study
  Country: CO (occurrence: CO)
  Receive Date: 20140717
  Receipt Date: 20140717
  Transmission Date: 20150326
  Serious: Yes (Death)
  Sender: FDA-Public Use
  Company Number: CO-ABBVIE-14P-036-1260266-00

PATIENT
  Age: 5 Month
  Sex: Female
  Weight: 2.9 kg

DRUGS (2)
  1. OXYGEN. [Concomitant]
     Active Substance: OXYGEN
     Indication: PRODUCT USED FOR UNKNOWN INDICATION
  2. PALIVIZUMAB [Suspect]
     Active Substance: PALIVIZUMAB
     Indication: HEART DISEASE CONGENITAL
     Route: 030
     Dates: start: 20140223, end: 20140526

REACTIONS (6)
  - Haematochezia [Fatal]
  - Respiratory distress [Fatal]
  - Abdominal distension [Fatal]
  - Vomiting [Fatal]
  - Pyrexia [Fatal]
  - Peritonitis [Fatal]

NARRATIVE: CASE EVENT DATE: 20140528
